FAERS Safety Report 9760230 (Version 1)
Quarter: 2013Q4

REPORT INFORMATION
  Report Type: Spontaneous
  Country: US (occurrence: US)
  Receive Date: 20131216
  Receipt Date: 20131216
  Transmission Date: 20140711
  Serious: No
  Sender: FDA-Public Use
  Company Number: US-GILEAD-2010-0028359

PATIENT
  Sex: Female
  Weight: 63.96 kg

DRUGS (13)
  1. LETAIRIS [Suspect]
     Indication: PULMONARY ARTERIAL HYPERTENSION
     Route: 048
     Dates: start: 20100317
  2. CLONIDINE HCL [Concomitant]
  3. ALPRAZOLAM [Concomitant]
  4. ALBUTEROL [Concomitant]
  5. TRAMADOL HCL [Concomitant]
  6. LISINOPRIL [Concomitant]
  7. METOCLOPRAMIDE [Concomitant]
  8. VITAMIN C [Concomitant]
  9. ADVAIR 100-50 DISKUS [Concomitant]
  10. VERAPAMIL [Concomitant]
  11. VITAMIN D3 [Concomitant]
  12. FERROUS SULFATE [Concomitant]
  13. ECOTRIN [Concomitant]

REACTIONS (1)
  - Feeling jittery [Unknown]
